FAERS Safety Report 13852938 (Version 1)
Quarter: 2017Q3

REPORT INFORMATION
  Report Type: Spontaneous
  Country: US (occurrence: US)
  Receive Date: 20170809
  Receipt Date: 20170809
  Transmission Date: 20171127
  Serious: No
  Sender: FDA-Public Use
  Company Number: US-ROCHE-630876

PATIENT
  Sex: Female
  Weight: 57.6 kg

DRUGS (4)
  1. ASA [Concomitant]
     Active Substance: ASPIRIN
     Route: 065
  2. BONIVA [Suspect]
     Active Substance: IBANDRONATE SODIUM
     Indication: OSTEOPOROSIS
     Dosage: FORM: PILL
     Route: 048
  3. CALCIUM/VITAMIN D [Concomitant]
     Active Substance: CALCIUM\VITAMIN D
  4. SYNTHROID [Concomitant]
     Active Substance: LEVOTHYROXINE SODIUM
     Indication: UNEVALUABLE EVENT
     Route: 048

REACTIONS (2)
  - Dyspepsia [Unknown]
  - Nausea [Unknown]
